FAERS Safety Report 5444749-0 (Version None)
Quarter: 2007Q3

REPORT INFORMATION
  Report Type: 
  Country: None (occurrence: None)
  Receive Date: 20070906
  Receipt Date: 20070227
  Transmission Date: 20080115
  Serious: No
  Sender: FDA-Public Use
  Company Number: A0641189A

PATIENT
  Age: 83 Year
  Sex: Female

DRUGS (10)
  1. REQUIP [Suspect]
     Indication: RESTLESS LEGS SYNDROME
     Dosage: 1MG PER DAY
     Route: 048
  2. FUROSEMIDE [Concomitant]
  3. GEMFIBROZIL [Concomitant]
  4. LIPITOR [Concomitant]
  5. DARVOCET [Concomitant]
  6. LIBRIUM [Concomitant]
  7. CLOPIDOGREL [Concomitant]
  8. COZAAR [Concomitant]
  9. PREMARIN [Concomitant]
  10. TOPROL-XL [Concomitant]

REACTIONS (2)
  - JOINT SWELLING [None]
  - PARAESTHESIA [None]
